FAERS Safety Report 5163892-7 (Version None)
Quarter: 2006Q4

REPORT INFORMATION
  Report Type: 
  Country: None (occurrence: None)
  Receive Date: 20061204
  Receipt Date: 20061112
  Transmission Date: 20070319
  Serious: Yes (Hospitalization)
  Sender: FDA-Public Use
  Company Number: JP-BRISTOL-MYERS SQUIBB COMPANY-13592795

PATIENT
  Age: 52 Year
  Sex: Male

DRUGS (10)
  1. RESLIN [Suspect]
     Indication: INSOMNIA
     Route: 048
     Dates: start: 19920801, end: 20050826
  2. VEGETAMIN [Suspect]
     Indication: ALCOHOLIC PSYCHOSIS
     Route: 048
     Dates: start: 20020101
  3. LULLAN [Suspect]
     Indication: INSOMNIA
     Route: 048
     Dates: start: 20020101
  4. EURODIN [Suspect]
     Indication: INSOMNIA
     Route: 048
     Dates: start: 19920101
  5. MEILAX [Suspect]
     Indication: ALCOHOLIC PSYCHOSIS
     Route: 048
     Dates: start: 19920101
  6. AMOBAN [Suspect]
     Indication: INSOMNIA
     Route: 048
     Dates: start: 19920101
  7. ROHIPNOL [Suspect]
     Indication: INSOMNIA
     Route: 048
     Dates: start: 19920101, end: 20050826
  8. LODOPIN [Suspect]
     Indication: INSOMNIA
     Route: 048
     Dates: start: 19920101, end: 20050826
  9. MYSLEE [Suspect]
     Indication: INSOMNIA
     Route: 048
     Dates: end: 20050826
  10. HALOPERIDOL [Suspect]
     Indication: INSOMNIA
     Route: 048
     Dates: start: 19920101, end: 20050826

REACTIONS (1)
  - PULMONARY THROMBOSIS [None]
